FAERS Safety Report 20296499 (Version 1)
Quarter: 2022Q1

REPORT INFORMATION
  Report Type: Spontaneous
  Country: US (occurrence: US)
  Receive Date: 20220105
  Receipt Date: 20220105
  Transmission Date: 20220423
  Serious: No
  Sender: FDA-Public Use
  Company Number: US-COOPERSURGICAL, INC.-US-2021CPS003461

PATIENT
  Age: 28 Year
  Sex: Female
  Weight: 64.399 kg

DRUGS (7)
  1. PARAGARD T 380A [Suspect]
     Active Substance: COPPER
     Indication: Contraception
     Dosage: UNK
     Route: 015
     Dates: start: 20211007, end: 20211007
  2. PARAGARD T 380A [Suspect]
     Active Substance: COPPER
     Dosage: UNK
     Route: 015
     Dates: start: 20211014
  3. ADDERALL [Concomitant]
     Active Substance: AMPHETAMINE ASPARTATE\AMPHETAMINE SULFATE\DEXTROAMPHETAMINE SACCHARATE\DEXTROAMPHETAMINE SULFATE
     Indication: Attention deficit hyperactivity disorder
     Route: 065
  4. CLARITIN [Concomitant]
     Active Substance: LORATADINE
     Indication: Seasonal allergy
     Route: 065
  5. DYMISTA [Concomitant]
     Active Substance: AZELASTINE HYDROCHLORIDE\FLUTICASONE PROPIONATE
     Indication: Seasonal allergy
     Route: 065
  6. CYTOTEC [Concomitant]
     Active Substance: MISOPROSTOL
     Indication: Cervical dilatation
     Dosage: 1 UNK, QD
     Route: 048
     Dates: start: 20211006, end: 20211007
  7. CYTOTEC [Concomitant]
     Active Substance: MISOPROSTOL
     Dosage: 1 UNK, Q4H
     Route: 048
     Dates: start: 20211007, end: 20211007

REACTIONS (2)
  - Complication of device insertion [Recovered/Resolved]
  - Off label use [Unknown]

NARRATIVE: CASE EVENT DATE: 20211007
